FAERS Safety Report 8309841-1 (Version None)
Quarter: 2012Q2

REPORT INFORMATION
  Report Type: 
  Country: None (occurrence: None)
  Receive Date: 20120425
  Receipt Date: 20120423
  Transmission Date: 20120825
  Serious: Yes (Death, Hospitalization, Other)
  Sender: FDA-Public Use
  Company Number: PHHY2012NL005322

PATIENT
  Sex: Male

DRUGS (3)
  1. ZOMETA [Suspect]
     Dosage: 4 MG/100 ML , 1X PER 28 DAYS
     Dates: start: 20091105
  2. ZOMETA [Suspect]
     Dosage: 4 MG/100 ML , 1X PER 28 DAYS
     Dates: start: 20120119
  3. ZOMETA [Suspect]
     Indication: PROSTATE CANCER METASTATIC
     Dosage: 4 MG/100 ML , 1X PER 28 DAYS

REACTIONS (8)
  - TRANSIENT ISCHAEMIC ATTACK [None]
  - GENERAL PHYSICAL HEALTH DETERIORATION [None]
  - HAEMOGLOBIN DECREASED [None]
  - DEATH [None]
  - MALAISE [None]
  - CEREBROVASCULAR ACCIDENT [None]
  - OEDEMA [None]
  - TERMINAL STATE [None]
